FAERS Safety Report 10652325 (Version 1)
Quarter: 2014Q4

REPORT INFORMATION
  Report Type: Spontaneous
  Country: US (occurrence: None)
  Receive Date: 20141211
  Receipt Date: 20141211
  Transmission Date: 20150529
  Serious: Yes (Other)
  Sender: FDA-Public Use
  Company Number: 20140785

PATIENT

DRUGS (1)
  1. INJECTAFER [Suspect]
     Active Substance: FERRIC CARBOXYMALTOSE

REACTIONS (4)
  - Hyperhidrosis [None]
  - Tremor [None]
  - Dyspnoea [None]
  - Flushing [None]
